FAERS Safety Report 8352098-6 (Version None)
Quarter: 2012Q2

REPORT INFORMATION
  Report Type: 
  Country: None (occurrence: None)
  Receive Date: 20120510
  Receipt Date: 20120510
  Transmission Date: 20120825
  Serious: No
  Sender: FDA-Public Use
  Company Number: None

PATIENT
  Age: 50 Year
  Sex: Female
  Weight: 61.2356 kg

DRUGS (1)
  1. RESTFUL LEGS N/A - ONLY ONE STRENGTH HYLAND'S, INC. [Suspect]
     Indication: RESTLESS LEGS SYNDROME
     Dosage: 2-3 PILLS EVERY 4 HOURS ORAL
     Route: 048
     Dates: start: 20120321, end: 20120321

REACTIONS (2)
  - DERMATITIS CONTACT [None]
  - PRODUCT QUALITY ISSUE [None]
